FAERS Safety Report 19515425 (Version 2)
Quarter: 2021Q3

REPORT INFORMATION
  Report Type: Spontaneous
  Country: AT (occurrence: AT)
  Receive Date: 20210709
  Receipt Date: 20210806
  Transmission Date: 20211014
  Serious: Yes (Death, Hospitalization)
  Sender: FDA-Public Use
  Company Number: AT-ALLERGAN-2125063US

PATIENT
  Sex: Male
  Weight: 85 kg

DRUGS (4)
  1. TEMESTA [LORAZEPAM] [Interacting]
     Active Substance: LORAZEPAM
     Indication: SEDATION
     Dosage: UNK
     Route: 065
     Dates: start: 20190117
  2. CITALOPRAM HYDROBROMIDE ? BP [Suspect]
     Active Substance: CITALOPRAM HYDROBROMIDE
     Indication: PRODUCT USED FOR UNKNOWN INDICATION
     Dosage: `1 DF, QD
     Route: 065
     Dates: start: 201901
  3. MEMANTIN [Concomitant]
     Active Substance: MEMANTINE
  4. QUETIAPIN +PHARMA [Interacting]
     Active Substance: QUETIAPINE FUMARATE
     Indication: SEDATION
     Dosage: 2 DF, QD
     Route: 065
     Dates: start: 201901

REACTIONS (19)
  - Disturbance in attention [Not Recovered/Not Resolved]
  - Sepsis [Unknown]
  - Cardio-respiratory distress [Not Recovered/Not Resolved]
  - Pneumonia aspiration [Unknown]
  - Condition aggravated [Not Recovered/Not Resolved]
  - Hypotension [Not Recovered/Not Resolved]
  - Vomiting [Unknown]
  - Somnolence [Recovering/Resolving]
  - Sedation complication [Fatal]
  - Fall [Unknown]
  - Arthralgia [Unknown]
  - Hypovolaemic shock [Unknown]
  - Delirium [Unknown]
  - Infection [Unknown]
  - Inflammatory marker increased [Unknown]
  - Contusion [Unknown]
  - Drug interaction [Unknown]
  - Basilar artery thrombosis [Unknown]
  - Tachycardia [Not Recovered/Not Resolved]

NARRATIVE: CASE EVENT DATE: 2019
